FAERS Safety Report 15560541 (Version 2)
Quarter: 2019Q1

REPORT INFORMATION
  Report Type: Spontaneous
  Country: BR (occurrence: BR)
  Receive Date: 20181029
  Receipt Date: 20190115
  Transmission Date: 20190417
  Serious: Yes (Death, Hospitalization, Other)
  Sender: FDA-Public Use
  Company Number: BR-VIIV HEALTHCARE LIMITED-BR2018GSK184330

PATIENT
  Age: 53 Year
  Sex: Female
  Weight: 32 kg

DRUGS (6)
  1. BACTRIM [Concomitant]
     Active Substance: SULFAMETHOXAZOLE\TRIMETHOPRIM
     Indication: PROPHYLAXIS
     Dosage: UNK
  2. DOLUTEGRAVIR [Suspect]
     Active Substance: DOLUTEGRAVIR
     Indication: ACQUIRED IMMUNODEFICIENCY SYNDROME
     Dosage: UNK
     Dates: start: 20180820
  3. ATAZANAVIR. [Suspect]
     Active Substance: ATAZANAVIR
     Indication: ACQUIRED IMMUNODEFICIENCY SYNDROME
     Dosage: UNK
  4. AZITROMYCIN [Concomitant]
     Active Substance: AZITHROMYCIN ANHYDROUS
     Indication: PROPHYLAXIS
     Dosage: UNK
  5. RITONAVIR. [Suspect]
     Active Substance: RITONAVIR
     Indication: ACQUIRED IMMUNODEFICIENCY SYNDROME
     Dosage: UNK
  6. LAMIVUDINE + TENOFOVIR [Suspect]
     Active Substance: LAMIVUDINE\TENOFOVIR
     Indication: ACQUIRED IMMUNODEFICIENCY SYNDROME
     Dosage: UNK
     Dates: start: 20180828

REACTIONS (21)
  - Haemophagocytic lymphohistiocytosis [Unknown]
  - Pancytopenia [Unknown]
  - Respiratory failure [Unknown]
  - Hallucination [Unknown]
  - Cerebral toxoplasmosis [Unknown]
  - Disorientation [Unknown]
  - Hepatic function abnormal [Unknown]
  - Tachypnoea [Unknown]
  - Weight decreased [Unknown]
  - Dizziness [Unknown]
  - Death [Fatal]
  - Tuberculosis [Unknown]
  - Asthenia [Unknown]
  - Feeding disorder [Unknown]
  - Decreased appetite [Unknown]
  - Respiratory tract infection [Unknown]
  - Candida infection [Not Recovered/Not Resolved]
  - Anaemia [Not Recovered/Not Resolved]
  - Mycobacterial infection [Unknown]
  - Metabolic acidosis [Unknown]
  - Hepatic enzyme abnormal [Unknown]

NARRATIVE: CASE EVENT DATE: 20181018
